FAERS Safety Report 11795920 (Version 1)
Quarter: 2015Q4

REPORT INFORMATION
  Report Type: Spontaneous
  Country: FR (occurrence: FR)
  Receive Date: 20151203
  Receipt Date: 20151203
  Transmission Date: 20160305
  Serious: Yes (Hospitalization)
  Sender: FDA-Public Use
  Company Number: FR-ROCHE-1671530

PATIENT
  Age: 70 Year
  Sex: Female
  Weight: 66 kg

DRUGS (6)
  1. SIMVASTATINE [Concomitant]
     Active Substance: SIMVASTATIN
     Route: 065
     Dates: start: 2005, end: 201510
  2. BISOPROLOL [Concomitant]
     Active Substance: BISOPROLOL
     Dosage: DOSE: 2.5 (UNIT NOT REPORTED)
     Route: 065
     Dates: start: 20150716
  3. METFORMIN [Concomitant]
     Active Substance: METFORMIN HYDROCHLORIDE
     Dosage: DOSE: 500 (UNIT NOT REPORTED)
     Route: 065
     Dates: start: 1998
  4. KARDEGIC [Concomitant]
     Active Substance: ASPIRIN LYSINE
     Dosage: DOSE: 75 (UNIT NOT REPORTED)
     Route: 065
     Dates: start: 2005
  5. HERCEPTIN [Suspect]
     Active Substance: TRASTUZUMAB
     Indication: BREAST CANCER
     Route: 042
     Dates: start: 201506, end: 20151021
  6. APROVEL [Concomitant]
     Active Substance: IRBESARTAN
     Dosage: DOSE: 150 (UNIT NOT REPORTED)
     Route: 065
     Dates: start: 20150716

REACTIONS (1)
  - Renal infarct [Not Recovered/Not Resolved]

NARRATIVE: CASE EVENT DATE: 20151102
